FAERS Safety Report 9958397 (Version 2)
Quarter: 2014Q2

REPORT INFORMATION
  Report Type: Spontaneous
  Country: US (occurrence: US)
  Receive Date: 20140305
  Receipt Date: 20140404
  Transmission Date: 20141212
  Serious: Yes (Other)
  Sender: FDA-Public Use
  Company Number: US-PFIZER INC-2014061432

PATIENT
  Age: 83 Year
  Sex: Female
  Weight: 70.39 kg

DRUGS (4)
  1. SUTENT [Suspect]
     Indication: RENAL CELL CARCINOMA
     Dosage: 37.5 MG (12.5 MG AND 25 MG),  DAILY
     Route: 048
     Dates: start: 20140121, end: 20140329
  2. CARBACHOL [Concomitant]
     Dosage: UNK
  3. MAVIK [Concomitant]
     Dosage: UNK
  4. PRILOSEC [Concomitant]
     Dosage: UNK

REACTIONS (3)
  - Fatigue [Unknown]
  - Eating disorder [Unknown]
  - Blood test abnormal [Unknown]
